FAERS Safety Report 9665714 (Version 2)
Quarter: 2014Q1

REPORT INFORMATION
  Report Type: Report from Study
  Country: NL (occurrence: NL)
  Receive Date: 20131104
  Receipt Date: 20140220
  Transmission Date: 20141002
  Serious: Yes (Death)
  Sender: FDA-Public Use
  Company Number: PHHY2013NL124261

PATIENT
  Age: 82 Year
  Sex: Male

DRUGS (5)
  1. ZOMETA [Suspect]
     Indication: PROSTATE CANCER METASTATIC
     Dosage: 4 MG/ 100 ML, ONCE PER 4 WEEKS
     Route: 042
  2. ZOMETA [Suspect]
     Dosage: 4 MG/ 100 ML, ONCE PER 4 WEEKSUNK
     Route: 042
     Dates: start: 20130821
  3. ZOMETA [Suspect]
     Dosage: 4 MG/ 100 ML, ONCE PER 4 WEEKSUNK
     Route: 042
     Dates: start: 20130918
  4. ZOMETA [Suspect]
     Dosage: 4 MG/ 100 ML, ONCE PER 4 WEEKS
     Route: 042
     Dates: start: 20131016
  5. ELIGARD [Concomitant]
     Dosage: 45 UKN, UNK
     Route: 058

REACTIONS (3)
  - Malaise [Fatal]
  - Prostate cancer metastatic [Fatal]
  - Malignant neoplasm progression [Fatal]
